FAERS Safety Report 18868872 (Version 2)
Quarter: 2021Q1

REPORT INFORMATION
  Report Type: Spontaneous
  Country: FI (occurrence: FI)
  Receive Date: 20210210
  Receipt Date: 20210330
  Transmission Date: 20210420
  Serious: Yes (Hospitalization)
  Sender: FDA-Public Use
  Company Number: FI-ABBVIE-21K-055-3761291-00

PATIENT
  Age: 57 Year
  Sex: Male
  Weight: 92 kg

DRUGS (4)
  1. VENCLYXTO [Suspect]
     Active Substance: VENETOCLAX
     Indication: CHRONIC LYMPHOCYTIC LEUKAEMIA
     Route: 048
     Dates: start: 202101, end: 202101
  2. VENCLYXTO [Suspect]
     Active Substance: VENETOCLAX
     Dosage: STARTED WITH 10 MG/DAY AND LATER INCREASED ALREADY UP TO 200 MG/DAY
     Route: 048
     Dates: start: 20210212
  3. COTRIM [Concomitant]
     Active Substance: SULFAMETHOXAZOLE\TRIMETHOPRIM
     Indication: ANTIFUNGAL PROPHYLAXIS
     Dosage: 80/400 MG
     Route: 048
     Dates: start: 20180201
  4. ALLOPURINOL. [Concomitant]
     Active Substance: ALLOPURINOL
     Indication: HYPERURICAEMIA
     Route: 048
     Dates: start: 20210111

REACTIONS (11)
  - Alanine aminotransferase increased [Recovered/Resolved]
  - Lymph node pain [Recovered/Resolved]
  - Gastrointestinal wall thickening [Recovered/Resolved]
  - Diverticulitis [Recovered/Resolved]
  - Blood lactate dehydrogenase increased [Recovered/Resolved]
  - Splenomegaly [Unknown]
  - Liver function test increased [Recovered/Resolved]
  - Oedema [Recovered/Resolved]
  - White blood cell count increased [Unknown]
  - Abdominal pain [Recovered/Resolved]
  - C-reactive protein increased [Unknown]

NARRATIVE: CASE EVENT DATE: 202101
